FAERS Safety Report 9630927 (Version 2)
Quarter: 2013Q4

REPORT INFORMATION
  Report Type: Spontaneous
  Country: BR (occurrence: BR)
  Receive Date: 20131018
  Receipt Date: 20131113
  Transmission Date: 20140711
  Serious: Yes (Other)
  Sender: FDA-Public Use
  Company Number: BR-PFIZER INC-2013297660

PATIENT
  Sex: Male

DRUGS (1)
  1. PRISTIQ [Suspect]
     Dosage: UNK

REACTIONS (4)
  - Suicide attempt [Unknown]
  - Drug withdrawal syndrome [Not Recovered/Not Resolved]
  - Anxiety [Unknown]
  - Sleep disorder [Unknown]
